FAERS Safety Report 11033537 (Version 4)
Quarter: 2015Q2

REPORT INFORMATION
  Report Type: Spontaneous
  Country: JP (occurrence: JP)
  Receive Date: 20150415
  Receipt Date: 20150625
  Transmission Date: 20150821
  Serious: Yes (Hospitalization, Other)
  Sender: FDA-Public Use
  Company Number: JP-PFIZER INC-2015127542

PATIENT
  Age: 60 Year
  Sex: Female
  Weight: 64 kg

DRUGS (4)
  1. FOSPHENYTOIN SODIUM. [Suspect]
     Active Substance: FOSPHENYTOIN SODIUM
     Indication: STATUS EPILEPTICUS
     Dosage: 750 MG, DAILY
     Route: 042
     Dates: start: 20150408, end: 20150408
  2. CEFTRIAXONE NA [Concomitant]
     Active Substance: CEFTRIAXONE
     Indication: MENINGITIS
     Dosage: 2 G, 2X/DAY
     Dates: start: 20150408, end: 20150414
  3. FOSPHENYTOIN SODIUM. [Suspect]
     Active Substance: FOSPHENYTOIN SODIUM
     Dosage: 600 MG, DAILY
     Route: 042
     Dates: start: 20150409, end: 20150414
  4. ACICLOVIN [Concomitant]
     Active Substance: ACYCLOVIR
     Indication: MENINGOENCEPHALITIS HERPETIC
     Dosage: 750 MG, 3X/DAY
     Dates: start: 20150408, end: 20150409

REACTIONS (5)
  - Skin exfoliation [Unknown]
  - Infusion site extravasation [Unknown]
  - Blister [Not Recovered/Not Resolved]
  - Erythema [Unknown]
  - Blood urea increased [Unknown]

NARRATIVE: CASE EVENT DATE: 20150409
